FAERS Safety Report 5304421-4 (Version None)
Quarter: 2007Q2

REPORT INFORMATION
  Report Type: 
  Country: None (occurrence: None)
  Receive Date: 20070423
  Receipt Date: 20070411
  Transmission Date: 20071010
  Serious: Yes (Hospitalization)
  Sender: FDA-Public Use
  Company Number: US-AVENTIS-200712728US

PATIENT
  Sex: Male

DRUGS (1)
  1. KETEK [Suspect]
     Indication: BRONCHITIS
     Dosage: DOSE: UNK
     Route: 048
     Dates: start: 20050301, end: 20050301

REACTIONS (15)
  - ABDOMINAL DISTENSION [None]
  - ABDOMINAL PAIN [None]
  - ASTHENIA [None]
  - COLITIS [None]
  - DEPRESSION [None]
  - FATIGUE [None]
  - HEPATIC ENZYME INCREASED [None]
  - HEPATITIS [None]
  - HYPERHIDROSIS [None]
  - INSOMNIA [None]
  - JAUNDICE [None]
  - NAUSEA [None]
  - PYREXIA [None]
  - SKIN DISCOLOURATION [None]
  - VOMITING [None]
